FAERS Safety Report 24025601 (Version 4)
Quarter: 2024Q3

REPORT INFORMATION
  Report Type: Report from Study
  Country: RO (occurrence: RO)
  Receive Date: 20240628
  Receipt Date: 20240710
  Transmission Date: 20241016
  Serious: No
  Sender: ROCHE
  Company Number: RO-ROCHE-3370960

PATIENT
  Age: 65 Year
  Sex: Female
  Weight: 54.0 kg

DRUGS (2)
  1. PHESGO [Suspect]
     Active Substance: HYALURONIDASE-ZZXF\PERTUZUMAB\TRASTUZUMAB
     Indication: Breast neoplasm
     Route: 030
     Dates: start: 202205
  2. EBASTINE [Concomitant]
     Active Substance: EBASTINE
     Indication: Asthma

REACTIONS (12)
  - Off label use [Unknown]
  - Weight decreased [Unknown]
  - Feeding disorder [Unknown]
  - Dizziness [Unknown]
  - Gait inability [Unknown]
  - Cough [Unknown]
  - Vomiting [Unknown]
  - Discomfort [Unknown]
  - Hypoacusis [Unknown]
  - Visual impairment [Unknown]
  - Pneumonia [Unknown]
  - Tooth abscess [Unknown]

NARRATIVE: CASE EVENT DATE: 20220501
